FAERS Safety Report 6264932-4 (Version None)
Quarter: 2009Q3

REPORT INFORMATION
  Report Type: 
  Country: None (occurrence: None)
  Receive Date: 20090709
  Receipt Date: 20090709
  Transmission Date: 20100115
  Serious: Yes (Life-Threatening)
  Sender: FDA-Public Use
  Company Number: None

PATIENT
  Sex: Male
  Weight: 72.5755 kg

DRUGS (2)
  1. COSOPT [Suspect]
     Indication: GLAUCOMA
     Dosage: 1 DROP TWICE DAILY EYES
     Route: 047
  2. DORZOLAMIDE [Suspect]
     Indication: GLAUCOMA
     Dosage: 1 DROP TWICE DAILY EYES
     Route: 047

REACTIONS (1)
  - HEART RATE IRREGULAR [None]
